FAERS Safety Report 8007326-3 (Version None)
Quarter: 2011Q4

REPORT INFORMATION
  Report Type: 
  Country: None (occurrence: None)
  Receive Date: 20111227
  Receipt Date: 20111220
  Transmission Date: 20120403
  Serious: Yes (Other)
  Sender: FDA-Public Use
  Company Number: US-ASTELLAS-2011US008598

PATIENT
  Sex: Female

DRUGS (1)
  1. ERLOTINIB HYDROCHLORIDE [Suspect]
     Indication: PANCREATIC CARCINOMA
     Dosage: 75 MG, UID/QD
     Route: 048
     Dates: start: 20110809

REACTIONS (6)
  - WALKING AID USER [None]
  - INCORRECT DOSE ADMINISTERED [None]
  - THROMBOSIS [None]
  - DIARRHOEA [None]
  - TOE AMPUTATION [None]
  - OXYGEN SATURATION DECREASED [None]
